FAERS Safety Report 13777029 (Version 1)
Quarter: 2017Q3

REPORT INFORMATION
  Report Type: Other
  Country: US (occurrence: US)
  Receive Date: 20170720
  Receipt Date: 20170720
  Transmission Date: 20171127
  Serious: Yes (Hospitalization, Other)
  Sender: FDA-Public Use
  Company Number: US-ALSI-201700205

PATIENT
  Age: 35 Year
  Sex: Female

DRUGS (5)
  1. NITROUS OXIDE. [Suspect]
     Active Substance: NITROUS OXIDE
     Indication: DRUG ABUSE
     Route: 055
  2. ETODOLAC. [Concomitant]
     Active Substance: ETODOLAC
  3. LORAZEPAM. [Concomitant]
     Active Substance: LORAZEPAM
  4. CITALOPRAM [Concomitant]
     Active Substance: CITALOPRAM HYDROBROMIDE
  5. MORPHINE SULFATE. [Concomitant]
     Active Substance: MORPHINE SULFATE

REACTIONS (2)
  - Subacute combined cord degeneration [None]
  - Drug use disorder [None]
